FAERS Safety Report 23772309 (Version 1)
Quarter: 2024Q2

REPORT INFORMATION
  Report Type: Spontaneous
  Country: US (occurrence: US)
  Receive Date: 20240423
  Receipt Date: 20240423
  Transmission Date: 20240715
  Serious: Yes (Other)
  Sender: FDA-Public Use
  Company Number: US-HIKMA PHARMACEUTICALS USA INC.-US-H14001-24-03317

PATIENT

DRUGS (2)
  1. DIGOXIN [Suspect]
     Active Substance: DIGOXIN
     Dosage: 61 MILLIGRAM, QD
     Route: 048
     Dates: start: 2023
  2. DIGOXIN [Suspect]
     Active Substance: DIGOXIN
     Dosage: 61 MILLIGRAM, EVERY OTHER DAY FOR 3 DAYS
     Route: 048
     Dates: start: 2023

REACTIONS (6)
  - Condition aggravated [Unknown]
  - Product dose omission in error [Unknown]
  - Asthenia [Unknown]
  - Dizziness [Unknown]
  - Headache [Unknown]
  - Nonspecific reaction [Unknown]
